FAERS Safety Report 8571397-6 (Version None)
Quarter: 2012Q3

REPORT INFORMATION
  Report Type: 
  Country: None (occurrence: None)
  Receive Date: 20120806
  Receipt Date: 20120727
  Transmission Date: 20120928
  Serious: Yes (Hospitalization, Other)
  Sender: FDA-Public Use
  Company Number: GB-AMGEN-GBRSP2012041033

PATIENT
  Age: 4 Year
  Sex: Male
  Weight: 13.1 kg

DRUGS (10)
  1. ACE INHIBITORS [Concomitant]
  2. ALFACALCIDOL [Concomitant]
     Indication: OSTEODYSTROPHY
     Dosage: UNK UNK, QD
     Route: 048
     Dates: start: 20080423
  3. SYTRON [Concomitant]
     Indication: IRON DEFICIENCY
     Dosage: 5 ML, QD
     Dates: start: 20080809
  4. ARANESP [Suspect]
     Indication: RENAL FAILURE ACUTE
     Dosage: 20 MUG, QWK
     Route: 058
     Dates: start: 20120202, end: 20120626
  5. NEORECORMON [Suspect]
     Indication: RENAL FAILURE ACUTE
  6. IRON SUCROSE [Concomitant]
     Indication: IRON DEFICIENCY
  7. NEORECORMON [Suspect]
     Indication: ANAEMIA
     Dosage: 2000 UNIT, 2 TIMES/WK
     Route: 058
     Dates: start: 20080401, end: 20120202
  8. CAPTOPRIL [Concomitant]
     Indication: HYPERTENSION
     Dosage: 6.25 MG, TID
     Route: 048
     Dates: start: 20080430, end: 20120702
  9. IRON SUCROSE [Concomitant]
     Indication: ANAEMIA
     Dosage: 36 MG, QWK
     Dates: start: 20120411
  10. ARANESP [Suspect]
     Indication: ANAEMIA
     Dosage: UNK

REACTIONS (3)
  - HAEMOGLOBIN DECREASED [None]
  - APLASIA PURE RED CELL [None]
  - DRUG INEFFECTIVE [None]
